FAERS Safety Report 17591255 (Version 1)
Quarter: 2020Q1

REPORT INFORMATION
  Report Type: Report from Study
  Country: IT (occurrence: IT)
  Receive Date: 20200327
  Receipt Date: 20200327
  Transmission Date: 20200409
  Serious: Yes (Other)
  Sender: FDA-Public Use
  Company Number: IT-PFIZER INC-2020035764

PATIENT
  Age: 69 Year
  Sex: Female

DRUGS (4)
  1. EPIRUBICIN HCL [Suspect]
     Active Substance: EPIRUBICIN HYDROCHLORIDE
     Indication: BREAST CANCER
     Dosage: UNK
     Route: 042
     Dates: start: 20191023, end: 20191220
  2. ENDOXAN-BAXTER [Suspect]
     Active Substance: CYCLOPHOSPHAMIDE
     Indication: BREAST CANCER
     Dosage: UNK
     Route: 042
     Dates: start: 20191023, end: 20191220
  3. DECADRON [Concomitant]
     Active Substance: DEXAMETHASONE
     Dosage: 1 VIAL BY 2 ML
  4. FLUOROURACIL. [Suspect]
     Active Substance: FLUOROURACIL
     Indication: BREAST CANCER
     Dosage: UNK
     Route: 042
     Dates: start: 20191023, end: 20191223

REACTIONS (9)
  - Alopecia [Unknown]
  - Asthenia [Unknown]
  - Constipation [Unknown]
  - Paraesthesia [Unknown]
  - Dry mouth [Unknown]
  - Leukopenia [Unknown]
  - Dry skin [Unknown]
  - Gastrooesophageal reflux disease [Unknown]
  - Dysgeusia [Unknown]

NARRATIVE: CASE EVENT DATE: 20191123
